FAERS Safety Report 21927423 (Version 1)
Quarter: 2023Q1

REPORT INFORMATION
  Report Type: Spontaneous
  Country: SI (occurrence: SI)
  Receive Date: 20230130
  Receipt Date: 20230130
  Transmission Date: 20230418
  Serious: Yes (Other)
  Sender: FDA-Public Use
  Company Number: SI-002147023-NVSC2023SI015419

PATIENT
  Sex: Male

DRUGS (1)
  1. LEQVIO [Suspect]
     Active Substance: INCLISIRAN SODIUM
     Indication: Low density lipoprotein increased
     Dosage: UNK
     Route: 065

REACTIONS (4)
  - Erectile dysfunction [Unknown]
  - Low density lipoprotein decreased [Unknown]
  - Gynaecomastia [Unknown]
  - Product colour issue [Unknown]
